FAERS Safety Report 5309430-7 (Version None)
Quarter: 2007Q2

REPORT INFORMATION
  Report Type: 
  Country: None (occurrence: None)
  Receive Date: 20070427
  Receipt Date: 20070418
  Transmission Date: 20071010
  Serious: Yes (Other)
  Sender: FDA-Public Use
  Company Number: PHFR2007GB01372

PATIENT
  Age: 83 Year
  Sex: Male

DRUGS (1)
  1. ZOMETA [Suspect]
     Indication: HYPERCALCAEMIA
     Dosage: 2MG / DAY
     Route: 065
     Dates: end: 20061101

REACTIONS (9)
  - BODY TEMPERATURE INCREASED [None]
  - COOMBS POSITIVE HAEMOLYTIC ANAEMIA [None]
  - HYPERGLOBULINAEMIA [None]
  - HYPERPROTEINAEMIA [None]
  - INFLUENZA LIKE ILLNESS [None]
  - MYALGIA [None]
  - POLYARTERITIS NODOSA [None]
  - POLYARTHRITIS [None]
  - RED BLOOD CELL SEDIMENTATION RATE INCREASED [None]
